FAERS Safety Report 24635027 (Version 1)
Quarter: 2024Q4

REPORT INFORMATION
  Report Type: Report from Study
  Country: US (occurrence: US)
  Receive Date: 20241119
  Receipt Date: 20241119
  Transmission Date: 20250114
  Serious: Yes (Other)
  Sender: ALEXION PHARMACEUTICALS
  Company Number: US-AstraZeneca-CH-00746337A

PATIENT

DRUGS (4)
  1. CAPIVASERTIB [Suspect]
     Active Substance: CAPIVASERTIB
     Indication: Breast cancer
     Dosage: 2 TABLETS BY MOUTH TWICE DAILY FOR 4 DAYS ON, THEN 3 DAYS OFF EACH WEEK
  2. CAPIVASERTIB [Suspect]
     Active Substance: CAPIVASERTIB
     Dosage: 2 TABLETS BY MOUTH TWICE DAILY FOR 4 DAYS ON, THEN 3 DAYS OFF EACH WEEK
  3. CAPIVASERTIB [Suspect]
     Active Substance: CAPIVASERTIB
     Dosage: 2 TABLETS BY MOUTH TWICE DAILY FOR 4 DAYS ON, THEN 3 DAYS OFF EACH WEEK
  4. CAPIVASERTIB [Suspect]
     Active Substance: CAPIVASERTIB
     Dosage: 2 TABLETS BY MOUTH TWICE DAILY FOR 4 DAYS ON, THEN 3 DAYS OFF EACH WEEK

REACTIONS (3)
  - Spinal pain [Unknown]
  - Musculoskeletal discomfort [Unknown]
  - Diabetes mellitus inadequate control [Unknown]
